FAERS Safety Report 5488204-0 (Version None)
Quarter: 2007Q4

REPORT INFORMATION
  Report Type: 
  Country: None (occurrence: None)
  Receive Date: 20071017
  Receipt Date: 20071005
  Transmission Date: 20080405
  Serious: Yes (Other)
  Sender: FDA-Public Use
  Company Number: US-BAYER-200713110BWH

PATIENT
  Age: 39 Year
  Sex: Female

DRUGS (2)
  1. AVELOX [Suspect]
     Indication: CHRONIC SINUSITIS
     Dosage: TOTAL DAILY DOSE: 400 MG  UNIT DOSE: 400 MG
     Route: 048
  2. PROTONIX [Concomitant]
     Indication: GASTROOESOPHAGEAL REFLUX DISEASE

REACTIONS (4)
  - ARTHRALGIA [None]
  - MUSCULOSKELETAL PAIN [None]
  - OSTEOARTHRITIS [None]
  - PAIN IN EXTREMITY [None]
